FAERS Safety Report 5023718-9 (Version None)
Quarter: 2006Q2

REPORT INFORMATION
  Report Type: 
  Country: None (occurrence: None)
  Receive Date: 20060606
  Receipt Date: 20060519
  Transmission Date: 20061013
  Serious: Yes (Hospitalization, Other)
  Sender: FDA-Public Use
  Company Number: US200605004444

PATIENT
  Age: 61 Year
  Sex: Female
  Weight: 99.8 kg

DRUGS (7)
  1. HUMULIN 70/30 [Suspect]
     Indication: DIABETES MELLITUS INSULIN-DEPENDENT
     Dosage: 2/D
  2. HUMULIN R [Suspect]
     Indication: DIABETES MELLITUS INSULIN-DEPENDENT
     Dosage: 20 UG, EACH EVENING, AS NEEDED
  3. NOVOLIN 70/30 [Concomitant]
  4. POTASSIUM (POTASSIUM) [Concomitant]
  5. ALEVE [Concomitant]
  6. TYLENOL /USA/(PARACETAMOL) [Concomitant]
  7. ADVIL [Concomitant]

REACTIONS (8)
  - ARTHRITIS [None]
  - BLOOD CHOLESTEROL INCREASED [None]
  - CEREBROVASCULAR ACCIDENT [None]
  - FLUID RETENTION [None]
  - HYPERTENSION [None]
  - OSTEOPOROSIS [None]
  - PHARMACEUTICAL PRODUCT COMPLAINT [None]
  - PULMONARY FIBROSIS [None]
